FAERS Safety Report 7463252-X (Version None)
Quarter: 2011Q2

REPORT INFORMATION
  Report Type: 
  Country: None (occurrence: None)
  Receive Date: 20110506
  Receipt Date: 20110503
  Transmission Date: 20111010
  Serious: Yes (Hospitalization)
  Sender: FDA-Public Use
  Company Number: FR-B.I. PHARMACEUTICALS,INC./RIDGEFIELD-2011-FF-00346FF

PATIENT
  Sex: Male

DRUGS (8)
  1. NEXIUM [Suspect]
     Dosage: 20 MG
     Route: 048
     Dates: start: 20110310, end: 20110315
  2. ZALDIAR [Concomitant]
     Dates: end: 20110101
  3. NOCTRAN [Concomitant]
     Dates: end: 20110101
  4. PRAMIPEXOLE DIHYDROCHLORIDE [Suspect]
     Indication: RESTLESS LEGS SYNDROME
     Dosage: 1.05 MG
     Route: 048
     Dates: start: 20100801, end: 20110404
  5. NEXIUM [Suspect]
     Route: 048
     Dates: end: 20110323
  6. TOPAAL [Concomitant]
     Dates: end: 20110101
  7. NEXIUM [Suspect]
     Dosage: 40 MG
     Route: 048
     Dates: start: 20070101, end: 20110310
  8. IBUPROFEN [Concomitant]
     Dates: end: 20110101

REACTIONS (2)
  - JAUNDICE [None]
  - CYTOLYTIC HEPATITIS [None]
